FAERS Safety Report 7152558-X (Version None)
Quarter: 2010Q4

REPORT INFORMATION
  Report Type: 
  Country: None (occurrence: None)
  Receive Date: 20101209
  Receipt Date: 20101209
  Transmission Date: 20110411
  Serious: Yes (Hospitalization)
  Sender: FDA-Public Use
  Company Number: None

PATIENT
  Sex: Female
  Weight: 81.6475 kg

DRUGS (2)
  1. YAZ [Suspect]
     Indication: ORAL CONTRACEPTION
     Dosage: 1 PILL 1 A DAY
     Dates: start: 20071001
  2. YAZ [Suspect]
     Indication: ORAL CONTRACEPTION
     Dosage: 1 PILL 1 A DAY
     Dates: start: 20081016

REACTIONS (8)
  - ANXIETY [None]
  - ASTHENIA [None]
  - CHEST PAIN [None]
  - CHOLELITHIASIS [None]
  - DYSPEPSIA [None]
  - DYSPNOEA [None]
  - FEELING ABNORMAL [None]
  - LETHARGY [None]
